FAERS Safety Report 18977390 (Version 5)
Quarter: 2021Q3

REPORT INFORMATION
  Report Type: Report from Study
  Country: US (occurrence: US)
  Receive Date: 20210306
  Receipt Date: 20210928
  Transmission Date: 20211014
  Serious: Yes (Other)
  Sender: FDA-Public Use
  Company Number: NVSC2021US051558

PATIENT
  Sex: Male

DRUGS (2)
  1. ENTRESTO [Suspect]
     Active Substance: SACUBITRIL\VALSARTAN
     Indication: PRODUCT USED FOR UNKNOWN INDICATION
     Dosage: 50 MG, BID (24/26 MG)
     Route: 065
     Dates: start: 202011
  2. ENTRESTO [Suspect]
     Active Substance: SACUBITRIL\VALSARTAN
     Dosage: 100 MG, BID (49/51 MG)
     Route: 065

REACTIONS (7)
  - Chills [Unknown]
  - Atrial fibrillation [Unknown]
  - Ejection fraction decreased [Unknown]
  - Weight decreased [Unknown]
  - Echocardiogram abnormal [Unknown]
  - Coronary artery occlusion [Unknown]
  - Fatigue [Unknown]
